FAERS Safety Report 7361454-4 (Version None)
Quarter: 2011Q1

REPORT INFORMATION
  Report Type: 
  Country: None (occurrence: None)
  Receive Date: 20110315
  Receipt Date: 20110315
  Transmission Date: 20110831
  Serious: Yes (Hospitalization)
  Sender: FDA-Public Use
  Company Number: None

PATIENT
  Sex: Female
  Weight: 54.4316 kg

DRUGS (1)
  1. DARVON [Suspect]
     Indication: PAIN
     Dosage: AS PERSCRIBED AS PERSCRIBED PILL
     Dates: start: 19600101

REACTIONS (7)
  - PRURITUS [None]
  - EYE SWELLING [None]
  - URTICARIA [None]
  - FEELING HOT [None]
  - SWELLING FACE [None]
  - SYNCOPE [None]
  - ERYTHEMA [None]
